FAERS Safety Report 8062632 (Version 2)
Quarter: 2014Q4

REPORT INFORMATION
  Report Type: Spontaneous
  Country: US (occurrence: US)
  Receive Date: 20110801
  Receipt Date: 20141006
  Transmission Date: 20150529
  Serious: Yes (Other)
  Sender: FDA-Public Use
  Company Number: US-ROCHE-734010

PATIENT
  Age: 25 Year
  Sex: Male
  Weight: 95.3 kg

DRUGS (1)
  1. ACCUTANE [Suspect]
     Active Substance: ISOTRETINOIN
     Indication: ACNE CYSTIC
     Dosage: DOSE TAKEN BETWEEN THERAPY PERIOD: 40 MG, 60 MG AND 80 MG
     Route: 048
     Dates: start: 19990101, end: 2000

REACTIONS (5)
  - Gastrointestinal injury [Unknown]
  - Anal fissure [Unknown]
  - Dry skin [Unknown]
  - Colitis ulcerative [Unknown]
  - Blood triglycerides increased [Unknown]

NARRATIVE: CASE EVENT DATE: 19991202
